FAERS Safety Report 5673362-5 (Version None)
Quarter: 2008Q1

REPORT INFORMATION
  Report Type: 
  Country: None (occurrence: None)
  Receive Date: 20080319
  Receipt Date: 20080128
  Transmission Date: 20080703
  Serious: Yes (Death)
  Sender: FDA-Public Use
  Company Number: US-TYCO HEALTHCARE/MALLINCKRODT-T200800326

PATIENT

DRUGS (4)
  1. ACETAMINOPHEN AND HYDROCODONE BITARTRATE [Suspect]
     Route: 048
  2. ACETAMINOPHEN AND OXYCODONE HCL [Suspect]
     Route: 048
  3. DILTIAZEM [Suspect]
     Route: 048
  4. ALPRAZOLAM [Suspect]
     Route: 048

REACTIONS (1)
  - COMPLETED SUICIDE [None]
